FAERS Safety Report 5771550-0 (Version None)
Quarter: 2008Q2

REPORT INFORMATION
  Report Type: 
  Country: None (occurrence: None)
  Receive Date: 20080613
  Receipt Date: 20080602
  Transmission Date: 20081010
  Serious: Yes (Disabling, Other)
  Sender: FDA-Public Use
  Company Number: PT-JNJFOC-20071201650

PATIENT
  Sex: Female
  Weight: 48 kg

DRUGS (5)
  1. SPORANOX [Suspect]
     Indication: ONYCHOMYCOSIS
     Route: 048
     Dates: start: 20060626, end: 20070128
  2. ACETAMINOPHEN [Concomitant]
     Indication: HEADACHE
     Route: 065
  3. ACETAMINOPHEN [Concomitant]
     Indication: INFLUENZA
     Route: 065
  4. PHENYLEPHRINE [Concomitant]
     Indication: INFLUENZA
     Route: 065
  5. CHLORPHENIRAMINE MALEATE [Concomitant]
     Indication: INFLUENZA
     Route: 065

REACTIONS (9)
  - ALANINE AMINOTRANSFERASE INCREASED [None]
  - ASPARTATE AMINOTRANSFERASE INCREASED [None]
  - C-REACTIVE PROTEIN INCREASED [None]
  - HEPATOTOXICITY [None]
  - MALAISE [None]
  - NAUSEA [None]
  - RED BLOOD CELL SEDIMENTATION RATE INCREASED [None]
  - SKIN EXFOLIATION [None]
  - VOMITING [None]
